FAERS Safety Report 6954968-X (Version None)
Quarter: 2010Q3

REPORT INFORMATION
  Report Type: 
  Country: None (occurrence: None)
  Receive Date: 20100830
  Receipt Date: 20100819
  Transmission Date: 20110219
  Serious: Yes (Other)
  Sender: FDA-Public Use
  Company Number: US-TYCO HEALTHCARE/MALLINCKRODT-T201001848

PATIENT
  Age: 47 Year
  Sex: Female

DRUGS (4)
  1. SODIUM IODIDE I 131 [Suspect]
     Indication: RADIOACTIVE IODINE THERAPY
     Dosage: 143 MCI, SINGLE
     Dates: start: 20060614, end: 20060614
  2. SODIUM IODIDE I 131 [Suspect]
     Dosage: 149 MCI, SINGLE
     Dates: start: 20070418, end: 20070418
  3. SODIUM IODIDE I 131 [Suspect]
     Dosage: 152 MCI, SINGLE
     Dates: start: 20080116, end: 20080116
  4. SODIUM IODIDE I 131 [Suspect]
     Dosage: 150 MCI, SINGLE
     Dates: start: 20080904, end: 20080904

REACTIONS (2)
  - SALIVARY GLAND CANCER [None]
  - TREATMENT FAILURE [None]
